FAERS Safety Report 6498263-4 (Version None)
Quarter: 2009Q4

REPORT INFORMATION
  Report Type: 
  Country: None (occurrence: None)
  Receive Date: 20091215
  Receipt Date: 20091208
  Transmission Date: 20100525
  Serious: Yes (Other)
  Sender: FDA-Public Use
  Company Number: B0611845A

PATIENT
  Age: 39 Year
  Sex: Male

DRUGS (2)
  1. FLUTIDE DISKUS [Suspect]
     Indication: ASTHMA
     Dosage: 200MCG TWICE PER DAY
     Route: 055
     Dates: start: 20090224
  2. FLUTIDE [Suspect]
     Indication: ASTHMA
     Dosage: 200MCG TWICE PER DAY
     Route: 055
     Dates: start: 20060310, end: 20081224

REACTIONS (1)
  - ALOPECIA AREATA [None]
